FAERS Safety Report 8811310 (Version 2)
Quarter: 2012Q4

REPORT INFORMATION
  Report Type: 
  Country: BE (occurrence: BE)
  Receive Date: 20120927
  Receipt Date: 20121112
  Transmission Date: 20130627
  Serious: No
  Sender: FDA-Public Use
  Company Number: BE-ELI_LILLY_AND_COMPANY-BE201209004794

PATIENT
  Age: 23 Year
  Sex: Male

DRUGS (5)
  1. ZYPREXA [Suspect]
     Indication: SCHIZOPHRENIA
     Dosage: 10 mg, qd
     Dates: start: 20120327
  2. TRANXENE [Concomitant]
  3. TRIAZOLAM [Concomitant]
  4. CLOPIXOL [Concomitant]
  5. SEROQUEL [Concomitant]
     Dosage: UNK
     Dates: end: 201208

REACTIONS (1)
  - Neutropenia [Unknown]
